FAERS Safety Report 4452994-6 (Version None)
Quarter: 2004Q3

REPORT INFORMATION
  Report Type: 
  Country: None (occurrence: None)
  Receive Date: 20040916
  Receipt Date: 20040903
  Transmission Date: 20050211
  Serious: Yes (Death, Hospitalization)
  Sender: FDA-Public Use
  Company Number: 2004UW18644

PATIENT
  Age: 49 Year
  Sex: Male
  Weight: 71.6683 kg

DRUGS (10)
  1. IRESSA [Suspect]
     Indication: NON-SMALL CELL LUNG CANCER
     Dosage: 250 MG QD PO
     Route: 048
     Dates: start: 20040609, end: 20040728
  2. IRESSA [Suspect]
     Indication: NON-SMALL CELL LUNG CANCER
     Dosage: 250 MG QD PO
     Route: 048
     Dates: start: 20040829
  3. CARBOPLATIN [Suspect]
     Indication: NON-SMALL CELL LUNG CANCER
     Dosage: 220 MG IV
     Route: 042
     Dates: start: 20040609, end: 20040728
  4. PACLITAXEL [Suspect]
     Indication: NON-SMALL CELL LUNG CANCER
     Dosage: 84 MG IV
     Route: 042
     Dates: start: 20040609, end: 20040728
  5. VITAMIN C [Concomitant]
  6. VITAMIN B COMPLEX CAP [Concomitant]
  7. COQ10 [Concomitant]
  8. CENTRUM A TO ZINC [Concomitant]
  9. LYSINE [Concomitant]
  10. MELATONIN [Concomitant]

REACTIONS (3)
  - BLOOD CULTURE POSITIVE [None]
  - OXYGEN SATURATION DECREASED [None]
  - PNEUMONIA [None]
